FAERS Safety Report 15959602 (Version 1)
Quarter: 2019Q1

REPORT INFORMATION
  Report Type: Spontaneous
  Country: GB (occurrence: GB)
  Receive Date: 20190214
  Receipt Date: 20190214
  Transmission Date: 20190417
  Serious: Yes (Death)
  Sender: FDA-Public Use
  Company Number: GB-TEVA-2019-GB-1009968

PATIENT
  Age: 72 Year
  Sex: Male
  Weight: 77 kg

DRUGS (5)
  1. WARFARIN SODIUM. [Suspect]
     Active Substance: WARFARIN SODIUM
     Indication: ATRIAL FIBRILLATION
     Dosage: 4 MILLIGRAM DAILY;
     Route: 048
     Dates: start: 2006
  2. RAMIPRIL. [Concomitant]
     Active Substance: RAMIPRIL
  3. ATENOLOL. [Concomitant]
     Active Substance: ATENOLOL
  4. DIGOXIN. [Concomitant]
     Active Substance: DIGOXIN
  5. ATORVASTATIN [Concomitant]
     Active Substance: ATORVASTATIN

REACTIONS (1)
  - Gastrointestinal haemorrhage [Fatal]

NARRATIVE: CASE EVENT DATE: 20181217
